FAERS Safety Report 25261778 (Version 1)
Quarter: 2025Q2

REPORT INFORMATION
  Report Type: Spontaneous
  Country: CN (occurrence: CN)
  Receive Date: 20250502
  Receipt Date: 20250502
  Transmission Date: 20250717
  Serious: Yes (Life-Threatening, Hospitalization, Other)
  Sender: BAXTER
  Company Number: None

PATIENT
  Age: 51 Year
  Sex: Female
  Weight: 60 kg

DRUGS (2)
  1. CYCLOPHOSPHAMIDE [Suspect]
     Active Substance: CYCLOPHOSPHAMIDE
     Indication: Breast cancer female
     Route: 041
     Dates: start: 20241225, end: 20250407
  2. DOXORUBICIN HYDROCHLORIDE [Suspect]
     Active Substance: DOXORUBICIN HYDROCHLORIDE
     Indication: Breast cancer female
     Route: 041
     Dates: start: 20241225, end: 20250407

REACTIONS (13)
  - Chest discomfort [Recovering/Resolving]
  - Atrioventricular block first degree [Unknown]
  - Myocardial ischaemia [Unknown]
  - Electrocardiogram T wave abnormal [Unknown]
  - Cardiomyopathy acute [Recovering/Resolving]
  - Palpitations [Recovering/Resolving]
  - Supraventricular tachycardia [Recovering/Resolving]
  - Cardiac failure acute [Unknown]
  - Atrial fibrillation [Unknown]
  - Electrocardiogram QT prolonged [Unknown]
  - Dyspnoea exertional [Unknown]
  - Atrial flutter [Unknown]
  - Hyperhidrosis [Unknown]

NARRATIVE: CASE EVENT DATE: 20250412
